FAERS Safety Report 15622545 (Version 1)
Quarter: 2018Q4

REPORT INFORMATION
  Report Type: Spontaneous
  Country: US (occurrence: US)
  Receive Date: 20181115
  Receipt Date: 20181115
  Transmission Date: 20190205
  Serious: Yes (Death, Other)
  Sender: FDA-Public Use
  Company Number: US-ASTRAZENECA-2018SF50240

PATIENT
  Sex: Male

DRUGS (1)
  1. SEROQUEL [Suspect]
     Active Substance: QUETIAPINE FUMARATE
     Indication: SCHIZOPHRENIA
     Dosage: 600MG DAILY HS
     Route: 048

REACTIONS (5)
  - Mental disorder [Fatal]
  - Aggression [Unknown]
  - Hallucinations, mixed [Unknown]
  - Therapy cessation [Fatal]
  - Completed suicide [Fatal]
